FAERS Safety Report 5352796-2 (Version None)
Quarter: 2007Q2

REPORT INFORMATION
  Report Type: 
  Country: None (occurrence: None)
  Receive Date: 20070611
  Receipt Date: 20070608
  Transmission Date: 20071010
  Serious: Yes (Hospitalization)
  Sender: FDA-Public Use
  Company Number: US-BRISTOL-MYERS SQUIBB COMPANY-12995551

PATIENT
  Age: 75 Year
  Sex: Male

DRUGS (3)
  1. CETUXIMAB [Suspect]
     Indication: LUNG CANCER METASTATIC
     Dosage: INITIATED ON 29-MAR-2005.  DOSE DELAYED/OMITTED IN RELATION TO EVENT.
     Route: 042
     Dates: start: 20050510, end: 20050510
  2. CARBOPLATIN [Suspect]
     Indication: LUNG CANCER METASTATIC
     Dosage: INITIATED ON 29-MAR-2005.  DOSE DELAYED/OMITTED IN RELATION TO EVENT.
     Route: 042
     Dates: start: 20050510, end: 20050510
  3. TAXOTERE [Suspect]
     Indication: LUNG CANCER METASTATIC
     Dosage: INITIATED ON 29-MAR-2005.  DOSE DELAYED/OMITTED IN RELATION TO EVENT.
     Route: 042
     Dates: start: 20050510, end: 20050510

REACTIONS (1)
  - FEBRILE NEUTROPENIA [None]
